FAERS Safety Report 6108134-0 (Version None)
Quarter: 2009Q1

REPORT INFORMATION
  Report Type: 
  Country: None (occurrence: None)
  Receive Date: 20090309
  Receipt Date: 20090223
  Transmission Date: 20090719
  Serious: Yes (Other)
  Sender: FDA-Public Use
  Company Number: US-ROCHE-616331

PATIENT
  Sex: Female

DRUGS (6)
  1. XELODA [Suspect]
     Indication: BREAST CANCER
     Route: 065
  2. TYKERB [Suspect]
     Indication: BREAST CANCER
     Dosage: DISCONTINUED APPROXIMATELY FOR 2 MONTHS
     Route: 048
     Dates: start: 20080922, end: 20081001
  3. TYKERB [Suspect]
     Route: 048
     Dates: end: 20081201
  4. RISEDRONIC ACID [Concomitant]
  5. TRIMETHOPRIM [Concomitant]
  6. LORAZEPAM [Concomitant]

REACTIONS (5)
  - DIARRHOEA [None]
  - GASTRIC ULCER [None]
  - MIGRAINE [None]
  - NEOPLASM RECURRENCE [None]
  - PALPITATIONS [None]
